FAERS Safety Report 17464392 (Version 1)
Quarter: 2020Q1

REPORT INFORMATION
  Report Type: Spontaneous
  Country: None (occurrence: US)
  Receive Date: 20200226
  Receipt Date: 20200226
  Transmission Date: 20200409
  Serious: No
  Sender: FDA-Public Use
  Company Number: US-AKRON, INC.-2080967

PATIENT
  Age: 80 Year
  Sex: Female

DRUGS (2)
  1. LOTEPREDNOL ETABONATE OPHTHALMIC SUSPENSION [Suspect]
     Active Substance: LOTEPREDNOL ETABONATE
     Route: 047
  2. DULOXETINE HYDROCHLORIDE. [Suspect]
     Active Substance: DULOXETINE HYDROCHLORIDE

REACTIONS (2)
  - Ocular hyperaemia [Recovering/Resolving]
  - Ocular icterus [Recovering/Resolving]
